FAERS Safety Report 20422877 (Version 1)
Quarter: 2022Q1

REPORT INFORMATION
  Report Type: Spontaneous
  Country: FR (occurrence: FR)
  Receive Date: 20220203
  Receipt Date: 20220203
  Transmission Date: 20220423
  Serious: Yes (Other)
  Sender: FDA-Public Use
  Company Number: None

PATIENT
  Age: 55 Year
  Sex: Male

DRUGS (4)
  1. ZYPADHERA [Suspect]
     Active Substance: OLANZAPINE PAMOATE
     Indication: Psychotic disorder
     Dosage: 405 MG, MONTHLY (1/M)
     Route: 030
     Dates: start: 20220110
  2. ZYPADHERA [Suspect]
     Active Substance: OLANZAPINE PAMOATE
     Indication: Psychotic disorder
     Dosage: 405 MG, MONTHLY (1/M)
     Route: 030
     Dates: start: 20220110
  3. ZYPADHERA [Suspect]
     Active Substance: OLANZAPINE PAMOATE
     Indication: Psychotic disorder
     Dosage: 405 MG, MONTHLY (1/M)
     Route: 030
     Dates: start: 20220110
  4. LOXAPINE [Concomitant]
     Active Substance: LOXAPINE
     Indication: Product used for unknown indication
     Dosage: UNK

REACTIONS (1)
  - Post-injection delirium sedation syndrome [Recovering/Resolving]

NARRATIVE: CASE EVENT DATE: 20220110
